FAERS Safety Report 7074862-6 (Version None)
Quarter: 2010Q4

REPORT INFORMATION
  Report Type: 
  Country: None (occurrence: None)
  Receive Date: 20101029
  Receipt Date: 20101018
  Transmission Date: 20110411
  Serious: Yes (Other)
  Sender: FDA-Public Use
  Company Number: PHHY2010US25151

PATIENT
  Sex: Male
  Weight: 92.7 kg

DRUGS (21)
  1. EXJADE [Suspect]
     Indication: SERUM FERRITIN INCREASED
     Dosage: 500 MG, QD
     Route: 048
     Dates: start: 20100405
  2. EXJADE [Suspect]
     Dosage: 500 MG, DAILY
     Route: 048
     Dates: start: 20100509
  3. CYANOCOBALAMIN [Concomitant]
     Dosage: 1,000 UG ONCE
     Route: 030
     Dates: start: 20081104
  4. NEUPOGEN [Concomitant]
     Dosage: 480 MCG ONCE
     Route: 058
     Dates: start: 20100503
  5. NEUPOGEN [Concomitant]
     Dosage: 480 MCE SQ 3 X WEEKLY
  6. CADUET [Concomitant]
     Dosage: 5- 10 MG DAILY
  7. NITROGLYCERIN [Concomitant]
     Dosage: AS NEEDED
  8. LIDODERM [Concomitant]
     Dosage: AS NEEDED 12 HR ON/12 HR OFF
     Route: 062
     Dates: start: 20080212
  9. TYLENOL (CAPLET) [Concomitant]
     Dosage: AS NEEDED
     Route: 048
     Dates: start: 20090113
  10. PRILOSEC [Concomitant]
     Dosage: 20 MG DAILY
     Route: 048
     Dates: start: 20090209
  11. FOLIC ACID [Concomitant]
     Dosage: 1 MG DAILY
     Route: 048
     Dates: start: 20090605
  12. FLEXERIL [Concomitant]
     Dosage: 5 MG THREE TIMES A DAY, AS NEEDED
     Route: 048
     Dates: start: 20091228
  13. OXYCODONE [Concomitant]
     Dosage: 5 MG AS NEEDED, 1-2 TABLETS Q3 HRS PRN MDD 12
     Route: 048
     Dates: start: 20100104
  14. CITALOPRAM HYDROBROMIDE [Concomitant]
     Dosage: 20 MG DAILY
     Route: 048
     Dates: start: 20100303
  15. RED BLOOD CELLS [Concomitant]
  16. LORTAB [Concomitant]
  17. COLACE [Concomitant]
  18. SENOKOT [Concomitant]
  19. LACTULOSE [Concomitant]
  20. VITAMIN B-12 [Concomitant]
  21. NITROGLYCERIN [Concomitant]

REACTIONS (17)
  - ACNE [None]
  - ANAEMIA [None]
  - ASTHENIA [None]
  - DECREASED APPETITE [None]
  - DEPRESSION [None]
  - DIARRHOEA [None]
  - DRUG INTOLERANCE [None]
  - DRY SKIN [None]
  - FATIGUE [None]
  - MALAISE [None]
  - NAUSEA [None]
  - NEUTROPENIA [None]
  - PAIN [None]
  - RASH [None]
  - SPLENIC INFARCTION [None]
  - THROMBOCYTOPENIA [None]
  - WHITE BLOOD CELL COUNT DECREASED [None]
